FAERS Safety Report 7912720-2 (Version None)
Quarter: 2011Q4

REPORT INFORMATION
  Report Type: 
  Country: None (occurrence: None)
  Receive Date: 20111114
  Receipt Date: 20111102
  Transmission Date: 20120403
  Serious: Yes (Hospitalization, Other)
  Sender: FDA-Public Use
  Company Number: JP-PFIZER INC-2011264341

PATIENT
  Age: 54 Year
  Sex: Male
  Weight: 70 kg

DRUGS (5)
  1. CELECOXIB [Suspect]
     Indication: INTERVERTEBRAL DISC PROTRUSION
     Dosage: 100 MG, 2X/DAY
     Route: 048
     Dates: start: 20110128, end: 20110206
  2. MUCOSTA [Suspect]
     Indication: PAIN IN EXTREMITY
     Dosage: 100 MG, AS NEEDED
     Route: 048
     Dates: start: 20110124, end: 20110128
  3. METHYCOBAL [Concomitant]
     Indication: INTERVERTEBRAL DISC PROTRUSION
     Dosage: 1.5 MG DAILY, DIVIDED INTO 3 DOSES
     Route: 048
     Dates: start: 20110128, end: 20110206
  4. LOXONIN [Suspect]
     Indication: PAIN IN EXTREMITY
     Dosage: 60 MG, AS NEEDED
     Route: 048
     Dates: start: 20110124, end: 20110128
  5. URSO 250 [Concomitant]
     Dosage: UNK
     Dates: start: 20021212

REACTIONS (3)
  - OROPHARYNGEAL PAIN [None]
  - PYREXIA [None]
  - DRUG ERUPTION [None]
